FAERS Safety Report 20366712 (Version 1)
Quarter: 2022Q1

REPORT INFORMATION
  Report Type: Other
  Country: US (occurrence: US)
  Receive Date: 20220123
  Receipt Date: 20220123
  Transmission Date: 20220424
  Serious: No
  Sender: FDA-Public Use
  Company Number: US-ACORDA-ACO_170561_2021

PATIENT
  Sex: Female

DRUGS (1)
  1. AMPYRA [Suspect]
     Active Substance: DALFAMPRIDINE
     Indication: Product used for unknown indication
     Dosage: 10 MILLIGRAM, Q 12 HRS
     Route: 048

REACTIONS (11)
  - Therapy interrupted [Unknown]
  - Fall [Recovered/Resolved]
  - Tremor [Recovered/Resolved]
  - Loss of personal independence in daily activities [Unknown]
  - Urinary incontinence [Unknown]
  - Eye movement disorder [Unknown]
  - Visual impairment [Unknown]
  - Depression [Unknown]
  - Speech disorder [Unknown]
  - Disturbance in attention [Unknown]
  - Memory impairment [Unknown]
